FAERS Safety Report 9851874 (Version 1)
Quarter: 2014Q1

REPORT INFORMATION
  Report Type: Report from Study
  Country: CN (occurrence: CN)
  Receive Date: 20140129
  Receipt Date: 20140129
  Transmission Date: 20141002
  Serious: Yes (Hospitalization)
  Sender: FDA-Public Use
  Company Number: CN-ROCHE-1337213

PATIENT
  Age: 60 Year
  Sex: Female
  Weight: 61 kg

DRUGS (15)
  1. OBINUTUZUMAB [Suspect]
     Indication: DIFFUSE LARGE B-CELL LYMPHOMA
     Dosage: DOSE CONCENTRATION LAST TAKEN: 4MG/ML, DATE OF MOST RECENT DOSE PRIOR TO SAE: 08/JAN/2014
     Route: 042
     Dates: start: 20131127
  2. CYCLOPHOSPHAMIDE [Suspect]
     Indication: DIFFUSE LARGE B-CELL LYMPHOMA
     Dosage: DATE OF MOST RECENT DOSE PRIOR TO SAE: 09/JAN/2014
     Route: 042
     Dates: start: 20131128
  3. DOXORUBICIN [Suspect]
     Indication: DIFFUSE LARGE B-CELL LYMPHOMA
     Dosage: DATE OF MOST RECENT DOSE PRIOR TO SAE: 09/JAN/2014
     Route: 042
     Dates: start: 20131128
  4. VINCRISTINE [Suspect]
     Indication: DIFFUSE LARGE B-CELL LYMPHOMA
     Dosage: DATE OF MOST RECENT DOSE PRIOR TO SAE: 09/JAN/2014
     Route: 050
     Dates: start: 20131128
  5. PREDNISONE [Suspect]
     Indication: DIFFUSE LARGE B-CELL LYMPHOMA
     Dosage: DATE OF MOST RECENT DOSE PRIOR TO SAE: 13/JAN/2014
     Route: 048
     Dates: start: 20131128
  6. EUTHYROX [Concomitant]
     Indication: AUTOIMMUNE THYROIDITIS
     Route: 065
     Dates: start: 20131126
  7. OMEPRAZOLE [Concomitant]
     Dosage: INDICATION: PROTECT GASTRIC MUCOSA
     Route: 065
     Dates: start: 20131128
  8. OMEPRAZOLE [Concomitant]
     Dosage: INDICATION: PROTECT GASTRIC MUCOSA
     Route: 065
     Dates: start: 20140109
  9. LEVOFLOXACIN [Concomitant]
     Dosage: INDICATION: ANTI-INFLAMMATORY AGENT
     Route: 065
     Dates: start: 20140106, end: 20140109
  10. DUPHALAC [Concomitant]
     Dosage: INDICATION: ASTRICTION
     Route: 065
     Dates: start: 20140107, end: 20140107
  11. PARACETAMOL [Concomitant]
     Dosage: INDICATION: ALLEVIATE PAIN
     Route: 065
     Dates: start: 20140108, end: 20140108
  12. PROMETHAZINE HYDROCHLORIDE [Concomitant]
     Indication: SEDATION
     Route: 065
     Dates: start: 20140108, end: 20140108
  13. PALONOSETRON HYDROCHLORIDE [Concomitant]
     Dosage: INDICATION: ANTIMETIC
     Route: 065
     Dates: start: 20140109, end: 20140109
  14. GLYCYRRHIZA [Concomitant]
     Dosage: INDICATION: REDUCE PHLEGM
     Route: 048
     Dates: start: 20140108, end: 20140108
  15. FILGRASTIM [Concomitant]
     Indication: WHITE BLOOD CELL COUNT INCREASED
     Route: 065
     Dates: start: 20140110, end: 20140110

REACTIONS (1)
  - Febrile neutropenia [Recovered/Resolved]
